FAERS Safety Report 12374147 (Version 1)
Quarter: 2016Q2

REPORT INFORMATION
  Report Type: Spontaneous
  Country: JP (occurrence: JP)
  Receive Date: 20160517
  Receipt Date: 20160517
  Transmission Date: 20160815
  Serious: Yes (Other)
  Sender: FDA-Public Use
  Company Number: JP-CIPLA LTD.-2016JP04883

PATIENT

DRUGS (4)
  1. PACLITAXEL. [Suspect]
     Active Substance: PACLITAXEL
     Dosage: 100 MG/M2, DAYS 1, 8 AND 15, EVERY 3 WEEKS
     Route: 065
  2. CARBOPLATIN. [Suspect]
     Active Substance: CARBOPLATIN
     Dosage: AUC 6, DAY 1, EVERY 3 WEEKS
     Route: 065
  3. PACLITAXEL. [Suspect]
     Active Substance: PACLITAXEL
     Indication: THYMOMA MALIGNANT
     Dosage: 40 MG/M2, WEEKLY
     Route: 065
  4. CARBOPLATIN. [Suspect]
     Active Substance: CARBOPLATIN
     Indication: THYMOMA MALIGNANT
     Dosage: AREA UNDER CURVE (AUC) 2, WEEKLY
     Route: 065

REACTIONS (3)
  - Disease progression [Unknown]
  - Neutropenia [Unknown]
  - Drug ineffective [Unknown]
